FAERS Safety Report 4427113-2 (Version None)
Quarter: 2004Q3

REPORT INFORMATION
  Report Type: 
  Country: None (occurrence: None)
  Receive Date: 20040811
  Receipt Date: 20040729
  Transmission Date: 20050211
  Serious: No
  Sender: FDA-Public Use
  Company Number: 2004UW16205

PATIENT
  Age: 83 Year
  Sex: Male
  Weight: 72.5755 kg

DRUGS (5)
  1. SEROQUEL [Suspect]
     Dosage: 200 MG PO
     Route: 048
  2. SEROQUEL [Suspect]
     Dosage: 25 MG PO
     Route: 048
  3. REMERON [Concomitant]
  4. ACTIVAN [Concomitant]
  5. AMBIEN [Concomitant]

REACTIONS (1)
  - PSEUDOPARALYSIS [None]
